FAERS Safety Report 21741098 (Version 1)
Quarter: 2022Q4

REPORT INFORMATION
  Report Type: Spontaneous
  Country: PT (occurrence: PT)
  Receive Date: 20221216
  Receipt Date: 20221216
  Transmission Date: 20230113
  Serious: Yes (Other)
  Sender: FDA-Public Use
  Company Number: None

PATIENT
  Age: 71 Year
  Sex: Female

DRUGS (1)
  1. COSENTYX [Suspect]
     Active Substance: SECUKINUMAB
     Indication: Psoriatic arthropathy
     Dosage: 1 PEN 7/ 7 DAYS (1 CANETA 7/7 DIAS)
     Route: 058
     Dates: start: 20221110, end: 20221117

REACTIONS (4)
  - Pruritus [Recovering/Resolving]
  - Face oedema [Recovering/Resolving]
  - Syncope [Recovered/Resolved]
  - Product substitution issue [Recovering/Resolving]

NARRATIVE: CASE EVENT DATE: 20221110
